FAERS Safety Report 9562141 (Version 1)
Quarter: 2013Q3

REPORT INFORMATION
  Report Type: Spontaneous
  Country: US (occurrence: US)
  Receive Date: 20130927
  Receipt Date: 20130927
  Transmission Date: 20140515
  Serious: Yes (Hospitalization)
  Sender: FDA-Public Use
  Company Number: US-ASTRAZENECA-2013SE71081

PATIENT
  Age: 92 Year
  Sex: Female
  Weight: 52.2 kg

DRUGS (7)
  1. PULMICORT RESPULES [Suspect]
     Indication: CHRONIC OBSTRUCTIVE PULMONARY DISEASE
     Route: 055
     Dates: start: 201309
  2. METOPROLOL SUCCINATE [Suspect]
     Indication: BLOOD PRESSURE ABNORMAL
     Route: 048
  3. SYNTHROID [Concomitant]
  4. CLOR KON [Concomitant]
  5. PLAVIX [Concomitant]
  6. BABY ASPIRIN [Concomitant]
  7. LASIX [Concomitant]

REACTIONS (6)
  - Aphasia [Not Recovered/Not Resolved]
  - Pneumonia [Not Recovered/Not Resolved]
  - Urinary tract infection [Not Recovered/Not Resolved]
  - Urinary incontinence [Unknown]
  - Foreign body aspiration [Unknown]
  - Fungal infection [Not Recovered/Not Resolved]
